FAERS Safety Report 5570104-9 (Version None)
Quarter: 2007Q4

REPORT INFORMATION
  Report Type: 
  Country: None (occurrence: None)
  Receive Date: 20071220
  Receipt Date: 20071210
  Transmission Date: 20080405
  Serious: Yes (Other)
  Sender: FDA-Public Use
  Company Number: DZ-PFIZER INC-2007103573

PATIENT
  Age: 60 Year
  Sex: Female

DRUGS (1)
  1. AMLOR [Suspect]
     Indication: HYPERTENSION
     Dosage: DAILY DOSE:10MG-FREQ:DAILY
     Route: 048

REACTIONS (3)
  - ABDOMINAL PAIN UPPER [None]
  - HEPATOMEGALY [None]
  - THROMBOCYTOPENIA [None]
